FAERS Safety Report 12846633 (Version 1)
Quarter: 2016Q4

REPORT INFORMATION
  Report Type: Spontaneous
  Country: US (occurrence: US)
  Receive Date: 20161013
  Receipt Date: 20161013
  Transmission Date: 20170207
  Serious: Yes (Other)
  Sender: FDA-Public Use
  Company Number: None

PATIENT
  Age: 54 Year
  Sex: Male
  Weight: 72 kg

DRUGS (6)
  1. MULTIPURPOSE VITAMIN [Concomitant]
  2. ZYCLARA [Suspect]
     Active Substance: IMIQUIMOD
     Indication: ANOGENITAL WARTS
     Dosage: ?          QUANTITY:6 PUMPS;?
     Route: 061
     Dates: start: 20160908, end: 20160912
  3. VITAMIN D [Concomitant]
     Active Substance: CHOLECALCIFEROL
  4. PROPECIA [Concomitant]
     Active Substance: FINASTERIDE
  5. FLUVOXAMINE [Concomitant]
     Active Substance: FLUVOXAMINE
  6. TRUVADA [Concomitant]
     Active Substance: EMTRICITABINE\TENOFOVIR DISOPROXIL FUMARATE

REACTIONS (3)
  - Infected skin ulcer [None]
  - Scrotal ulcer [None]
  - Penile ulceration [None]

NARRATIVE: CASE EVENT DATE: 20160912
